FAERS Safety Report 4295475-5 (Version None)
Quarter: 2004Q1

REPORT INFORMATION
  Report Type: 
  Country: None (occurrence: None)
  Receive Date: 20040211
  Receipt Date: 20040129
  Transmission Date: 20041129
  Serious: Yes (Death)
  Sender: FDA-Public Use
  Company Number: F01200400167

PATIENT
  Age: 64 Year
  Sex: Male

DRUGS (9)
  1. ARIXTRA [Suspect]
     Indication: HIP SURGERY
     Dosage: 2.5 MG, SUBCUTANEOUS
     Route: 058
     Dates: start: 20040128, end: 20040128
  2. ARIXTRA [Suspect]
     Indication: THROMBOSIS PROPHYLAXIS
     Dosage: 2.5 MG, SUBCUTANEOUS
     Route: 058
     Dates: start: 20040128, end: 20040128
  3. ASPIRIN [Concomitant]
  4. METFORMIN HCL [Concomitant]
  5. GLYBURIDE [Concomitant]
  6. METOPROLOL TARTRATE [Concomitant]
  7. ISOSORBIDE DINITRATE [Concomitant]
  8. DICLOFENAC SODIUM [Concomitant]
  9. CALCIUM LACTATE [Concomitant]

REACTIONS (4)
  - CARDIO-RESPIRATORY ARREST [None]
  - MELAENA [None]
  - OVERDOSE [None]
  - UPPER GASTROINTESTINAL HAEMORRHAGE [None]
